FAERS Safety Report 8855723 (Version 1)
Quarter: 2012Q4

REPORT INFORMATION
  Report Type: 
  Country: US (occurrence: US)
  Receive Date: 20121023
  Receipt Date: 20121023
  Transmission Date: 20130627
  Serious: No
  Sender: FDA-Public Use
  Company Number: US-AMGEN-USASP2012059191

PATIENT
  Sex: Female
  Weight: 85.71 kg

DRUGS (7)
  1. ENBREL [Suspect]
     Indication: PRODUCT USED FOR UNKNOWN INDICATION
     Dosage: 50 mg, qwk
     Route: 058
  2. METHOTREXATE [Concomitant]
     Dosage: 2.5 mg, UNK
  3. CELEBREX [Concomitant]
     Dosage: 50 mg, UNK
  4. ZANTAC [Concomitant]
     Dosage: 150 mg, UNK
  5. VITAMIN D3 [Concomitant]
     Dosage: 1000 unit, UNK
  6. TYLENOL /00020001/ [Concomitant]
     Dosage: 500 mg, UNK
  7. FOLINIC ACID [Concomitant]
     Dosage: 10 mg, UNK

REACTIONS (1)
  - Drug ineffective [Unknown]
